FAERS Safety Report 16268407 (Version 1)
Quarter: 2019Q2

REPORT INFORMATION
  Report Type: Spontaneous
  Country: US (occurrence: US)
  Receive Date: 20190503
  Receipt Date: 20190503
  Transmission Date: 20190711
  Serious: Yes (Hospitalization)
  Sender: FDA-Public Use
  Company Number: US-IPSEN BIOPHARMACEUTICALS, INC.-2019-07142

PATIENT
  Age: 34 Year
  Sex: Female

DRUGS (4)
  1. DYSPORT [Suspect]
     Active Substance: ABOBOTULINUMTOXINA
     Indication: SKIN WRINKLING
     Dosage: 45 UNITS (GLABELLA (30 UNITS, FOREHEAD 15 UNITS)
     Dates: start: 20190201, end: 20190201
  2. DYSPORT [Suspect]
     Active Substance: ABOBOTULINUMTOXINA
     Indication: OFF LABEL USE
  3. DYSPORT [Suspect]
     Active Substance: ABOBOTULINUMTOXINA
     Indication: SKIN WRINKLING
  4. RESTYLANE [Suspect]
     Active Substance: HYALURONIC ACID
     Dosage: BILATERAL CHEEK AREAS, NLF AND JAWLINE A TOTAL OF 3 SYRINGES.
     Dates: start: 20190201, end: 20190201

REACTIONS (3)
  - Drug hypersensitivity [Unknown]
  - Off label use [Unknown]
  - Impetigo [Unknown]

NARRATIVE: CASE EVENT DATE: 2019
